FAERS Safety Report 7348164-4 (Version None)
Quarter: 2011Q1

REPORT INFORMATION
  Report Type: 
  Country: None (occurrence: None)
  Receive Date: 20110311
  Receipt Date: 20110302
  Transmission Date: 20110831
  Serious: Yes (Other)
  Sender: FDA-Public Use
  Company Number: CA-JNJFOC-20110302147

PATIENT
  Sex: Female
  Weight: 67 kg

DRUGS (2)
  1. REMICADE [Suspect]
     Indication: CROHN'S DISEASE
     Dosage: THERAPY DURATION, 2.5 YEARS
     Route: 042
  2. METHOTREXATE [Concomitant]
     Route: 048

REACTIONS (1)
  - POOR VENOUS ACCESS [None]
